FAERS Safety Report 9758405 (Version 1)
Quarter: 2013Q4

REPORT INFORMATION
  Report Type: Spontaneous
  Country: US (occurrence: None)
  Receive Date: 20131213
  Receipt Date: 20131213
  Transmission Date: 20140711
  Serious: Yes (Other)
  Sender: FDA-Public Use
  Company Number: None

PATIENT
  Age: 64 Year
  Sex: Female

DRUGS (17)
  1. AFINITOR 10MG NOVARTIS [Suspect]
     Route: 048
     Dates: start: 20130214
  2. AFINITOR 10MG NOVARTIS [Suspect]
     Route: 048
     Dates: start: 20130214
  3. AFINITOR 10MG NOVARTIS [Suspect]
     Route: 048
     Dates: start: 20130214
  4. LOVAZEPAM [Concomitant]
  5. ASA [Concomitant]
  6. EXEMESTOME [Concomitant]
  7. HCTZ [Concomitant]
  8. VIT C/VIT E [Concomitant]
  9. BENATEPRIL [Concomitant]
  10. MULTI VITAMIN [Concomitant]
  11. PROCHLORPERAZINE [Concomitant]
  12. CALCIUM [Concomitant]
  13. LEVOTHROID [Concomitant]
  14. BENADRYL [Concomitant]
  15. CLARITIN D [Concomitant]
  16. EUCENIVE CREAM [Concomitant]
  17. IRON [Concomitant]

REACTIONS (3)
  - Rash [None]
  - Pruritus [None]
  - Rash [None]
